FAERS Safety Report 21522755 (Version 3)
Quarter: 2022Q4

REPORT INFORMATION
  Report Type: Spontaneous
  Country: US (occurrence: US)
  Receive Date: 20221029
  Receipt Date: 20221112
  Transmission Date: 20230113
  Serious: Yes (Other)
  Sender: FDA-Public Use
  Company Number: US-UNITED THERAPEUTICS-UNT-2022-025372

PATIENT
  Sex: Female

DRUGS (2)
  1. REMODULIN [Suspect]
     Active Substance: TREPROSTINIL
     Indication: Pulmonary arterial hypertension
     Dosage: UNK, CONTINUING
     Route: 058
     Dates: start: 20210324
  2. REMODULIN [Suspect]
     Active Substance: TREPROSTINIL
     Dosage: 0.0774 ?G/KG, CONTINUING
     Route: 058

REACTIONS (5)
  - Cerebrovascular accident [Unknown]
  - Device dislocation [Unknown]
  - Dyspnoea [Unknown]
  - Chest pain [Unknown]
  - Muscle spasms [Unknown]
